FAERS Safety Report 8995596 (Version 1)
Quarter: 2013Q1

REPORT INFORMATION
  Report Type: Spontaneous
  Country: US (occurrence: US)
  Receive Date: 20130103
  Receipt Date: 20130103
  Transmission Date: 20140127
  Serious: No
  Sender: FDA-Public Use
  Company Number: US-ABBOTT-12P-163-0891182-00

PATIENT
  Sex: Female
  Weight: 63.56 kg

DRUGS (3)
  1. SYNTHROID [Suspect]
     Indication: HYPOTHYROIDISM
     Dosage: IN A.M.
     Dates: start: 201011
  2. SYNTHROID [Suspect]
  3. VINEGAR [Concomitant]
     Indication: GASTRIC PH INCREASED
     Dosage: TWICE TO THREE TIMES DAILY

REACTIONS (15)
  - Abdominal pain upper [Not Recovered/Not Resolved]
  - Nausea [Not Recovered/Not Resolved]
  - Nausea [Not Recovered/Not Resolved]
  - Erythema [Not Recovered/Not Resolved]
  - Face oedema [Not Recovered/Not Resolved]
  - Erythema [Not Recovered/Not Resolved]
  - Rhinalgia [Not Recovered/Not Resolved]
  - Chest pain [Not Recovered/Not Resolved]
  - Pruritus [Not Recovered/Not Resolved]
  - Fatigue [Not Recovered/Not Resolved]
  - Ill-defined disorder [Not Recovered/Not Resolved]
  - Dysphonia [Not Recovered/Not Resolved]
  - Urine calcium increased [Unknown]
  - Hypervitaminosis D [Unknown]
  - Vitamin D increased [Unknown]
